FAERS Safety Report 6014157-2 (Version None)
Quarter: 2008Q4

REPORT INFORMATION
  Report Type: 
  Country: None (occurrence: None)
  Receive Date: 20081219
  Receipt Date: 20080122
  Transmission Date: 20090506
  Serious: No
  Sender: FDA-Public Use
  Company Number: A0704605A

PATIENT
  Age: 67 Year
  Sex: Male

DRUGS (3)
  1. AVODART [Suspect]
     Dosage: 1CAP PER DAY
     Route: 048
     Dates: start: 20070601
  2. VYTORIN [Concomitant]
  3. COZAAR [Concomitant]

REACTIONS (4)
  - EJACULATION DISORDER [None]
  - ERECTILE DYSFUNCTION [None]
  - LIBIDO DECREASED [None]
  - POLLAKIURIA [None]
